FAERS Safety Report 5267143-4 (Version None)
Quarter: 2007Q1

REPORT INFORMATION
  Report Type: 
  Country: None (occurrence: None)
  Receive Date: 20070312
  Receipt Date: 20070226
  Transmission Date: 20070707
  Serious: Yes (Death)
  Sender: FDA-Public Use
  Company Number: SPI200700071

PATIENT
  Age: 77 Year
  Sex: Female
  Weight: 62.1 kg

DRUGS (10)
  1. AMITIZA [Suspect]
     Indication: CONSTIPATION
     Dosage: 24 MCG, BID, ORAL
     Route: 048
     Dates: start: 20061002
  2. LIPITOR [Concomitant]
  3. DIOVAN /01319601/ (VALSARTAN) [Concomitant]
  4. CELEBREX [Concomitant]
  5. PLAVIX [Concomitant]
  6. ASPIRIN [Concomitant]
  7. SYNTHROID [Concomitant]
  8. MULTIVITAMIN /00831701/ (VITAMINS NOS) [Concomitant]
  9. ELAVIL /00002202/ (AMITRIPTYLINE HYDROCHLORIDE) [Concomitant]
  10. ACTIVELLA /00876401/ (ESTRADIOL, NORETHISTERONE) [Concomitant]

REACTIONS (2)
  - DIZZINESS [None]
  - HEADACHE [None]
